FAERS Safety Report 17220416 (Version 2)
Quarter: 2020Q1

REPORT INFORMATION
  Report Type: Spontaneous
  Country: SE (occurrence: SE)
  Receive Date: 20191231
  Receipt Date: 20200103
  Transmission Date: 20200409
  Serious: Yes (Death, Life-Threatening, Hospitalization, Disabling)
  Sender: FDA-Public Use
  Company Number: SE-ASTRAZENECA-2019SF92258

PATIENT
  Age: 88 Year
  Sex: Male

DRUGS (1)
  1. BRILIQUE [Suspect]
     Active Substance: TICAGRELOR
     Indication: MYOCARDIAL INFARCTION
     Route: 048
     Dates: start: 20161224, end: 20171027

REACTIONS (6)
  - Cerebral haemorrhage [Fatal]
  - Haematuria [Fatal]
  - Wound haemorrhage [Fatal]
  - Gastric ulcer [Fatal]
  - Epistaxis [Fatal]
  - Melaena [Fatal]

NARRATIVE: CASE EVENT DATE: 20170103
